FAERS Safety Report 7257547-2 (Version None)
Quarter: 2011Q1

REPORT INFORMATION
  Report Type: 
  Country: None (occurrence: None)
  Receive Date: 20110129
  Receipt Date: 20100521
  Transmission Date: 20110831
  Serious: No
  Sender: FDA-Public Use
  Company Number: US-ABBOTT-10P-163-0646723-00

PATIENT
  Age: 37 Year
  Sex: Female

DRUGS (5)
  1. BENADRYL [Concomitant]
     Indication: PRODUCT USED FOR UNKNOWN INDICATION
     Dosage: 25-50MG DAILY
  2. HUMIRA [Suspect]
     Indication: ANKYLOSING SPONDYLITIS
     Dates: start: 20090201
  3. VIT D [Concomitant]
     Indication: PRODUCT USED FOR UNKNOWN INDICATION
  4. MULTI-VITAMIN [Concomitant]
     Indication: PRODUCT USED FOR UNKNOWN INDICATION
  5. LORAZEPAM [Concomitant]
     Indication: SLEEP DISORDER

REACTIONS (6)
  - INFLUENZA LIKE ILLNESS [None]
  - RASH MACULAR [None]
  - RASH [None]
  - THYROID NEOPLASM [None]
  - DYSPNOEA [None]
  - FEELING ABNORMAL [None]
